FAERS Safety Report 11785920 (Version 1)
Quarter: 2015Q4

REPORT INFORMATION
  Report Type: Spontaneous
  Country: FR (occurrence: FR)
  Receive Date: 20151130
  Receipt Date: 20151130
  Transmission Date: 20160305
  Serious: Yes (Hospitalization, Other)
  Sender: FDA-Public Use
  Company Number: FR-BAXTER-2015BAX063240

PATIENT
  Age: 15 Year
  Sex: Male

DRUGS (21)
  1. ENDOXAN 1000 MG, POUDRE POUR SOLUTION INJECTABLE [Suspect]
     Active Substance: CYCLOPHOSPHAMIDE
     Indication: EWING^S SARCOMA
     Route: 042
     Dates: start: 20131206, end: 20140415
  2. VINCRISTINE HOSPIRA [Suspect]
     Active Substance: VINCRISTINE
     Route: 042
     Dates: start: 20131206, end: 20140415
  3. ADRIBLASTINE [Suspect]
     Active Substance: DOXORUBICIN
     Route: 042
     Dates: start: 20131206, end: 20140415
  4. COSMEGEN [Suspect]
     Active Substance: DACTINOMYCIN
     Indication: EWING^S SARCOMA
     Route: 042
     Dates: start: 20131114, end: 20131116
  5. UROMITEXAN 5 G/50 ML, SOLUTION INJECTABLE POUR PERFUSION EN FLACON [Suspect]
     Active Substance: MESNA
     Indication: PRODUCT USED FOR UNKNOWN INDICATION
     Route: 065
     Dates: start: 20130611, end: 20131004
  6. UROMITEXAN 5 G/50 ML, SOLUTION INJECTABLE POUR PERFUSION EN FLACON [Suspect]
     Active Substance: MESNA
     Route: 065
     Dates: start: 20131114, end: 20131116
  7. IFOSFAMIDE EG [Suspect]
     Active Substance: IFOSFAMIDE
     Indication: EWING^S SARCOMA
     Route: 042
     Dates: start: 20130611, end: 20131004
  8. VINCRISTINE HOSPIRA [Suspect]
     Active Substance: VINCRISTINE
     Route: 042
     Dates: start: 20140512, end: 20140612
  9. IFOSFAMIDE EG [Suspect]
     Active Substance: IFOSFAMIDE
     Route: 042
     Dates: start: 20131114, end: 20131116
  10. ETOPOSIDE MYLAN [Suspect]
     Active Substance: ETOPOSIDE
     Indication: EWING^S SARCOMA
     Route: 042
     Dates: start: 20130611, end: 20131004
  11. UROMITEXAN 5 G/50 ML, SOLUTION INJECTABLE POUR PERFUSION EN FLACON [Suspect]
     Active Substance: MESNA
     Route: 065
     Dates: start: 20140512, end: 20140612
  12. ADRIBLASTINE [Suspect]
     Active Substance: DOXORUBICIN
     Route: 042
     Dates: start: 20131114, end: 20131116
  13. COSMEGEN [Suspect]
     Active Substance: DACTINOMYCIN
     Route: 042
     Dates: start: 20140512, end: 20140612
  14. VITAMIN D3 [Concomitant]
     Active Substance: CHOLECALCIFEROL
     Indication: PRODUCT USED FOR UNKNOWN INDICATION
     Dosage: 76
     Route: 065
     Dates: start: 20150724
  15. ENDOXAN 1000 MG, POUDRE POUR SOLUTION INJECTABLE [Suspect]
     Active Substance: CYCLOPHOSPHAMIDE
     Route: 042
     Dates: start: 20140512, end: 20140612
  16. UROMITEXAN 5 G/50 ML, SOLUTION INJECTABLE POUR PERFUSION EN FLACON [Suspect]
     Active Substance: MESNA
     Route: 065
     Dates: start: 20131206, end: 20140415
  17. VINCRISTINE HOSPIRA [Suspect]
     Active Substance: VINCRISTINE
     Indication: EWING^S SARCOMA
     Route: 042
     Dates: start: 20130611, end: 20131004
  18. VINCRISTINE HOSPIRA [Suspect]
     Active Substance: VINCRISTINE
     Route: 042
     Dates: start: 20131114, end: 20131116
  19. ADRIBLASTINE [Suspect]
     Active Substance: DOXORUBICIN
     Indication: EWING^S SARCOMA
     Route: 042
     Dates: start: 20130611, end: 20131004
  20. ADRIBLASTINE [Suspect]
     Active Substance: DOXORUBICIN
     Route: 042
     Dates: start: 20140512, end: 20140612
  21. COSMEGEN [Suspect]
     Active Substance: DACTINOMYCIN
     Route: 042
     Dates: start: 20131206, end: 20140415

REACTIONS (9)
  - Oral disorder [Unknown]
  - Feeling jittery [Unknown]
  - Headache [Unknown]
  - Sensory loss [Unknown]
  - Nervous system disorder [Unknown]
  - Vomiting [Unknown]
  - Renal tubular disorder [Recovered/Resolved with Sequelae]
  - Disorganised speech [Unknown]
  - Hypoaesthesia [Unknown]

NARRATIVE: CASE EVENT DATE: 201507
